FAERS Safety Report 5936034-5 (Version None)
Quarter: 2008Q4

REPORT INFORMATION
  Report Type: 
  Country: None (occurrence: None)
  Receive Date: 20081030
  Receipt Date: 20081020
  Transmission Date: 20090506
  Serious: Yes (Other)
  Sender: FDA-Public Use
  Company Number: JP-PFIZER INC-2008082526

PATIENT
  Age: 78 Year
  Sex: Female

DRUGS (1)
  1. EPLERENONE [Suspect]
     Dosage: DAILY DOSE:25MG
     Route: 048

REACTIONS (2)
  - DEHYDRATION [None]
  - HEPATIC FUNCTION ABNORMAL [None]
